FAERS Safety Report 17261413 (Version 4)
Quarter: 2020Q1

REPORT INFORMATION
  Report Type: Report from Study
  Country: GB (occurrence: GB)
  Receive Date: 20200113
  Receipt Date: 20200211
  Transmission Date: 20200409
  Serious: Yes (Death, Hospitalization, Disabling, Other)
  Sender: FDA-Public Use
  Company Number: GB-BRISTOL-MYERS SQUIBB COMPANY-BMS-2019-126152

PATIENT
  Age: 72 Year
  Sex: Female
  Weight: 56.9 kg

DRUGS (6)
  1. PARACETAMOL [Concomitant]
     Active Substance: ACETAMINOPHEN
     Indication: MUSCULOSKELETAL PAIN
     Dosage: 1 GRAM
     Route: 048
     Dates: start: 2015
  2. AMLODIPINE [Concomitant]
     Active Substance: AMLODIPINE BESYLATE
     Indication: HYPERTENSION
     Dosage: 5 MILLIGRAM, QD
     Route: 048
     Dates: start: 201604
  3. NIVOLUMAB [Suspect]
     Active Substance: NIVOLUMAB
     Indication: OVARIAN CANCER
     Dosage: 240 MILLIGRAM
     Route: 042
     Dates: start: 20191223, end: 20191223
  4. IPILIMUMAB [Suspect]
     Active Substance: IPILIMUMAB
     Indication: OVARIAN CANCER
     Dosage: 57.5 MILLIGRAM
     Route: 042
     Dates: start: 20191009, end: 20191120
  5. MAGNASPARTATE [Concomitant]
     Indication: HYPOMAGNESAEMIA
     Dosage: 10 MILLIMOLE, QD
     Route: 048
     Dates: start: 2012
  6. RUCAPARIB [Suspect]
     Active Substance: RUCAPARIB
     Indication: OVARIAN CANCER
     Dosage: 600 MILLIGRAM
     Route: 048
     Dates: start: 20191009, end: 20200106

REACTIONS (3)
  - Encephalitis [Recovered/Resolved with Sequelae]
  - Hepatic failure [Fatal]
  - Acute kidney injury [Fatal]

NARRATIVE: CASE EVENT DATE: 20200107
